FAERS Safety Report 24908082 (Version 3)
Quarter: 2025Q1

REPORT INFORMATION
  Report Type: Report from Study
  Country: CA (occurrence: CA)
  Receive Date: 20250131
  Receipt Date: 20250220
  Transmission Date: 20250408
  Serious: Yes (Hospitalization, Other)
  Sender: CSL BEHRING
  Company Number: CA-BEH-2025190891

PATIENT
  Age: 80 Year
  Sex: Female

DRUGS (3)
  1. HIZENTRA [Suspect]
     Active Substance: HUMAN IMMUNOGLOBULIN G
     Indication: Secondary immunodeficiency
     Route: 065
  2. HIZENTRA [Suspect]
     Active Substance: HUMAN IMMUNOGLOBULIN G
     Dosage: STRENGTH 5, Q3W
     Route: 065
     Dates: start: 20241205
  3. HIZENTRA [Suspect]
     Active Substance: HUMAN IMMUNOGLOBULIN G
     Dosage: (STRENGTH 5G), Q3W
     Route: 065
     Dates: start: 20241205

REACTIONS (15)
  - Cardiac failure [Unknown]
  - Infusion site swelling [Unknown]
  - Memory impairment [Unknown]
  - Product packaging difficult to open [Unknown]
  - Product administration error [Unknown]
  - Pruritus [Unknown]
  - Erythema [Unknown]
  - Infusion site bruising [Unknown]
  - Tremor [Unknown]
  - Platelet disorder [Unknown]
  - Injection site discolouration [Unknown]
  - Cardiac disorder [Unknown]
  - Rhinorrhoea [Unknown]
  - Infusion site swelling [Unknown]
  - Memory impairment [Unknown]

NARRATIVE: CASE EVENT DATE: 20241201
